FAERS Safety Report 12229901 (Version 2)
Quarter: 2016Q2

REPORT INFORMATION
  Report Type: Report from Study
  Country: US (occurrence: US)
  Receive Date: 20160401
  Receipt Date: 20160627
  Transmission Date: 20160815
  Serious: No
  Sender: FDA-Public Use
  Company Number: GXBR2016US000898

PATIENT
  Sex: Female

DRUGS (1)
  1. OMNITROPE [Suspect]
     Active Substance: SOMATROPIN
     Indication: TURNER^S SYNDROME
     Dosage: 2.6 MG, QD
     Route: 065

REACTIONS (3)
  - Injection site discomfort [Not Recovered/Not Resolved]
  - Drug administered in wrong device [Unknown]
  - Incorrect dose administered [Unknown]
